FAERS Safety Report 6290808-2 (Version None)
Quarter: 2009Q3

REPORT INFORMATION
  Report Type: 
  Country: None (occurrence: None)
  Receive Date: 20090730
  Receipt Date: 20090720
  Transmission Date: 20100115
  Serious: Yes (Life-Threatening, Hospitalization, Other)
  Sender: FDA-Public Use
  Company Number: RS-NOVOPROD-289312

PATIENT
  Sex: Female
  Weight: 26 kg

DRUGS (1)
  1. NORDITROPIN [Suspect]
     Indication: HYPOPITUITARISM
     Dosage: .66 MG, QD
     Route: 058
     Dates: start: 20080310, end: 20090625

REACTIONS (1)
  - METASTASES TO CENTRAL NERVOUS SYSTEM [None]
